FAERS Safety Report 22876627 (Version 2)
Quarter: 2024Q1

REPORT INFORMATION
  Report Type: Spontaneous
  Country: JP (occurrence: JP)
  Receive Date: 20230829
  Receipt Date: 20240125
  Transmission Date: 20240409
  Serious: Yes (Other)
  Sender: FDA-Public Use
  Company Number: JP-ASTELLAS-2023JP009978

PATIENT
  Age: 7 Decade
  Sex: Female

DRUGS (1)
  1. PADCEV [Suspect]
     Active Substance: ENFORTUMAB VEDOTIN-EJFV
     Indication: Bladder cancer
     Route: 041

REACTIONS (3)
  - Neutropenia [Not Recovered/Not Resolved]
  - Skin disorder [Recovering/Resolving]
  - Alopecia [Not Recovered/Not Resolved]
